FAERS Safety Report 6131239-5 (Version None)
Quarter: 2009Q1

REPORT INFORMATION
  Report Type: 
  Country: None (occurrence: None)
  Receive Date: 20090325
  Receipt Date: 20080327
  Transmission Date: 20090719
  Serious: Yes (Hospitalization)
  Sender: FDA-Public Use
  Company Number: US-BRISTOL-MYERS SQUIBB COMPANY-14058945

PATIENT
  Age: 68 Year
  Sex: Male

DRUGS (6)
  1. ERBITUX [Suspect]
     Indication: METASTATIC NEOPLASM
     Dosage: SCHEDULED DOSE: 400 MG/M2 THEN 250 MG/M2 BUT RECEIVED APPROXIMATELY 100 MG/M2.
     Route: 042
     Dates: start: 20080102, end: 20080102
  2. IRINOTECAN HCL [Concomitant]
     Route: 042
  3. BENADRYL [Concomitant]
     Route: 042
     Dates: start: 20080102
  4. ZANTAC [Concomitant]
     Route: 042
     Dates: start: 20080102
  5. TYLENOL [Concomitant]
     Route: 048
     Dates: start: 20080102
  6. SOLU-CORTEF [Concomitant]
     Route: 042
     Dates: start: 20080102

REACTIONS (1)
  - INFUSION RELATED REACTION [None]
